FAERS Safety Report 8691079 (Version 2)
Quarter: 2013Q4

REPORT INFORMATION
  Report Type: Spontaneous
  Country: US (occurrence: US)
  Receive Date: 20120730
  Receipt Date: 20131101
  Transmission Date: 20140711
  Serious: Yes (Other)
  Sender: FDA-Public Use
  Company Number: US-009507513-1207USA009852

PATIENT
  Sex: Male

DRUGS (4)
  1. ZOCOR [Suspect]
     Route: 048
  2. PRILOSEC [Suspect]
     Route: 048
  3. ATENOLOL [Suspect]
  4. CLOMIPRAMINE HYDROCHLORIDE [Suspect]

REACTIONS (6)
  - Abdominal pain [Unknown]
  - Constipation [Unknown]
  - Dizziness [Unknown]
  - Dyspepsia [Unknown]
  - Muscular weakness [Unknown]
  - Nausea [Unknown]
